FAERS Safety Report 10867724 (Version 2)
Quarter: 2015Q2

REPORT INFORMATION
  Report Type: Spontaneous
  Country: JP (occurrence: JP)
  Receive Date: 20150225
  Receipt Date: 20150428
  Transmission Date: 20150821
  Serious: Yes (Other)
  Sender: FDA-Public Use
  Company Number: JP-IMPAX LABORATORIES, INC-2015-IPXL-00180

PATIENT
  Age: 6 Year
  Sex: Male
  Weight: 16 kg

DRUGS (19)
  1. DIVALPROEX SODIUM ER [Interacting]
     Active Substance: DIVALPROEX SODIUM
     Dosage: 450 MG, DAILY
     Route: 065
     Dates: start: 20130130, end: 2013
  2. TEBIPENEM PIVOXIL [Interacting]
     Active Substance: TEBIPENEM PIVOXIL
     Indication: RHINORRHOEA
  3. CEFDITOREN PIVOXIL. [Concomitant]
     Active Substance: CEFDITOREN PIVOXIL
     Indication: TYMPANIC MEMBRANE DISORDER
     Dosage: 200 MG, DAILY
     Route: 065
     Dates: start: 20121213
  4. MONTELUKAST SODIUM. [Concomitant]
     Active Substance: MONTELUKAST SODIUM
     Indication: RHINORRHOEA
  5. DIVALPROEX SODIUM ER [Suspect]
     Active Substance: DIVALPROEX SODIUM
     Indication: EPILEPSY
     Dosage: 100 MG, DAILY
     Route: 065
     Dates: start: 20120201, end: 201203
  6. DIVALPROEX SODIUM ER [Interacting]
     Active Substance: DIVALPROEX SODIUM
     Dosage: 400 MG, DAILY
     Route: 065
     Dates: start: 20121227, end: 201301
  7. DIVALPROEX SODIUM ER [Interacting]
     Active Substance: DIVALPROEX SODIUM
     Dosage: 500 MG DAILY (TWICE DAILY; 2 TABLETS AFTER BREAKFAST, 3 TABLETS BEFORE SLEEPING)
     Route: 065
     Dates: start: 20131009
  8. ANTIBIOTICS-RESISTANT LACTIC ACID BACTERIAE [Concomitant]
     Active Substance: UNSPECIFIED INGREDIENT
     Indication: TYMPANIC MEMBRANE DISORDER
     Dosage: 1 G, 2 /DAY
     Route: 065
     Dates: start: 20121213, end: 201212
  9. BECLOMETASONE DIPROPIONATE [Concomitant]
     Active Substance: BECLOMETHASONE DIPROPIONATE
     Indication: TYMPANIC MEMBRANE DISORDER
     Dosage: 2 DAILY SPRAYS
     Route: 045
     Dates: start: 20121218
  10. BECLOMETASONE DIPROPIONATE [Concomitant]
     Active Substance: BECLOMETHASONE DIPROPIONATE
     Indication: RHINORRHOEA
  11. TEBIPENEM PIVOXIL [Interacting]
     Active Substance: TEBIPENEM PIVOXIL
     Indication: INFLAMMATION
     Dosage: 80 MG, 2 /DAY
     Route: 065
     Dates: start: 20121226, end: 20121227
  12. CEFDITOREN PIVOXIL. [Concomitant]
     Active Substance: CEFDITOREN PIVOXIL
     Indication: RHINORRHOEA
  13. DIVALPROEX SODIUM ER [Interacting]
     Active Substance: DIVALPROEX SODIUM
     Dosage: 350 MG, DAILY
     Route: 065
     Dates: start: 20120314, end: 201212
  14. MONTELUKAST SODIUM. [Concomitant]
     Active Substance: MONTELUKAST SODIUM
     Indication: TYMPANIC MEMBRANE DISORDER
     Dosage: 5 MG, DAILY
     Route: 065
     Dates: start: 20121213
  15. MEQUITAZINE [Concomitant]
     Active Substance: MEQUITAZINE
     Indication: TYMPANIC MEMBRANE DISORDER
     Dosage: 1.8 MG, DAILY
     Route: 065
     Dates: start: 20121213
  16. CARBOCISTEINE [Concomitant]
     Active Substance: CARBOCYSTEINE
     Indication: RHINORRHOEA
  17. ANTIBIOTICS-RESISTANT LACTIC ACID BACTERIAE [Concomitant]
     Active Substance: UNSPECIFIED INGREDIENT
     Indication: RHINORRHOEA
     Dosage: 1.5 G, DAILY
     Route: 065
     Dates: start: 20121227
  18. MEQUITAZINE [Concomitant]
     Active Substance: MEQUITAZINE
     Indication: RHINORRHOEA
  19. CARBOCISTEINE [Concomitant]
     Active Substance: CARBOCYSTEINE
     Indication: TYMPANIC MEMBRANE DISORDER
     Dosage: 500 MG, DAILY
     Route: 065
     Dates: start: 20121213

REACTIONS (4)
  - Epilepsy [Recovered/Resolved]
  - Drug interaction [Recovered/Resolved]
  - Anticonvulsant drug level below therapeutic [Recovering/Resolving]
  - Nausea [Unknown]

NARRATIVE: CASE EVENT DATE: 20121227
